FAERS Safety Report 15640073 (Version 2)
Quarter: 2018Q4

REPORT INFORMATION
  Report Type: Report from Study
  Country: US (occurrence: US)
  Receive Date: 20181120
  Receipt Date: 20181214
  Transmission Date: 20190205
  Serious: Yes (Hospitalization)
  Sender: FDA-Public Use
  Company Number: US-EXELIXIS-CABO-18016838

PATIENT
  Sex: Female

DRUGS (7)
  1. CABOMETYX [Suspect]
     Active Substance: CABOZANTINIB S-MALATE
     Indication: RENAL CANCER
     Dosage: 60 MG, QD
     Route: 048
     Dates: start: 20181012, end: 2018
  2. ONDANSETRON [Concomitant]
     Active Substance: ONDANSETRON
  3. TYLENOL [Concomitant]
     Active Substance: ACETAMINOPHEN
  4. CABOMETYX [Suspect]
     Active Substance: CABOZANTINIB S-MALATE
     Dosage: 40 MG, QD
     Route: 048
     Dates: start: 2018
  5. AMLODIPINE [Concomitant]
     Active Substance: AMLODIPINE BESYLATE
  6. NORCO [Concomitant]
     Active Substance: ACETAMINOPHEN\HYDROCODONE BITARTRATE
  7. IRON [Concomitant]
     Active Substance: IRON

REACTIONS (10)
  - Malignant neoplasm progression [Unknown]
  - Abdominal mass [Unknown]
  - Erythema [Unknown]
  - Hyperkeratosis [Unknown]
  - Nausea [Unknown]
  - Vomiting [Unknown]
  - Vaginal cancer [Unknown]
  - Urethritis [Unknown]
  - Skin ulcer [Unknown]
  - Blister [Unknown]

NARRATIVE: CASE EVENT DATE: 2018
